FAERS Safety Report 6920890-8 (Version None)
Quarter: 2010Q3

REPORT INFORMATION
  Report Type: 
  Country: None (occurrence: None)
  Receive Date: 20100812
  Receipt Date: 20100809
  Transmission Date: 20110219
  Serious: Yes (Hospitalization)
  Sender: FDA-Public Use
  Company Number: GB-AMGEN-KDC430028

PATIENT
  Sex: Female

DRUGS (19)
  1. VECTIBIX [Suspect]
     Indication: GASTROOESOPHAGEAL CANCER
     Dates: start: 20100427
  2. EPIRUBICIN [Suspect]
     Dates: start: 20100427
  3. OXALIPLATIN [Suspect]
     Dates: start: 20100427
  4. CAPECITABINE [Suspect]
     Dates: start: 20100427
  5. DEXAMETHASONE [Concomitant]
     Dates: start: 20100602
  6. BISOPROLOL [Concomitant]
     Dates: start: 20100426
  7. CANDESARTAN [Concomitant]
     Dates: start: 20100426
  8. OMEPRAZOLE [Concomitant]
     Dates: start: 20100426
  9. ASPIRIN [Concomitant]
     Dates: start: 20100426
  10. MULTI-VITAMINS [Concomitant]
     Dates: start: 20100426
  11. VITAMIN B [Concomitant]
     Dates: start: 20100426
  12. ROSUVASTATIN [Concomitant]
     Dates: start: 20100601
  13. METRONIDAZOLE [Concomitant]
     Dates: start: 20100603
  14. CLINDAMYCIN [Concomitant]
     Dates: start: 20100603
  15. CIPROFLOXACIN [Concomitant]
     Dates: start: 20100605
  16. METOCLOPRAMIDE [Concomitant]
     Dates: start: 20100601
  17. ACETAMINOPHEN [Concomitant]
     Dates: start: 20100601
  18. LOPERAMIDE [Concomitant]
     Dates: start: 20100604
  19. LORAZEPAM [Concomitant]
     Dates: start: 20100601

REACTIONS (2)
  - DIARRHOEA [None]
  - NEUTROPENIA [None]
